FAERS Safety Report 14553892 (Version 1)
Quarter: 2018Q1

REPORT INFORMATION
  Report Type: Spontaneous
  Country: US (occurrence: US)
  Receive Date: 20180217
  Receipt Date: 20180217
  Transmission Date: 20180509
  Serious: No
  Sender: FDA-Public Use
  Company Number: None

PATIENT
  Age: 68 Year
  Sex: Female

DRUGS (1)
  1. IMATINIB 400MG BDI PHARMA [Suspect]
     Active Substance: IMATINIB
     Indication: NEOPLASM
     Route: 048

REACTIONS (4)
  - Flatulence [None]
  - Abdominal distension [None]
  - Eructation [None]
  - Diarrhoea [None]

NARRATIVE: CASE EVENT DATE: 20160208
